FAERS Safety Report 5741028-9 (Version None)
Quarter: 2008Q2

REPORT INFORMATION
  Report Type: 
  Country: None (occurrence: None)
  Receive Date: 20080513
  Receipt Date: 20080428
  Transmission Date: 20081010
  Serious: Yes (Death)
  Sender: FDA-Public Use
  Company Number: MEDI-0006343

PATIENT
  Age: 7 Month
  Sex: Male
  Weight: 8 kg

DRUGS (4)
  1. SYNAGIS [Suspect]
     Indication: ANTIVIRAL PROPHYLAXIS
     Dosage: 15 MG/KG, IM: 15 MG/KG, IM : 15 MG/KG, IM
     Route: 030
     Dates: start: 20070901, end: 20070901
  2. SYNAGIS [Suspect]
     Indication: ANTIVIRAL PROPHYLAXIS
     Dosage: 15 MG/KG, IM: 15 MG/KG, IM : 15 MG/KG, IM
     Route: 030
     Dates: start: 20071001
  3. SYNAGIS [Suspect]
     Indication: ANTIVIRAL PROPHYLAXIS
     Dosage: 15 MG/KG, IM: 15 MG/KG, IM : 15 MG/KG, IM
     Route: 030
     Dates: start: 20071101
  4. PROPRANOLOL [Concomitant]

REACTIONS (9)
  - BRONCHIOLITIS [None]
  - CARDIAC FAILURE [None]
  - CARDIOMYOPATHY [None]
  - CONDITION AGGRAVATED [None]
  - GENERAL PHYSICAL HEALTH DETERIORATION [None]
  - LETHARGY [None]
  - NASOPHARYNGITIS [None]
  - RESPIRATORY FAILURE [None]
  - RESPIRATORY SYNCYTIAL VIRUS INFECTION [None]
